FAERS Safety Report 7676266-1 (Version None)
Quarter: 2011Q3

REPORT INFORMATION
  Report Type: 
  Country: None (occurrence: None)
  Receive Date: 20110805
  Receipt Date: 20110722
  Transmission Date: 20111222
  Serious: Yes (Hospitalization, Disabling, Other)
  Sender: FDA-Public Use
  Company Number: 2011070167

PATIENT
  Sex: Female
  Weight: 81.6475 kg

DRUGS (8)
  1. MOTRIN [Suspect]
     Indication: PAIN
     Dosage: (800 MG, 3 TO 4 TIMES PER DAY)
  2. LISINOPRIL [Suspect]
     Indication: HYPERTENSION
     Dosage: 10 MG/12.5 MG
  3. XANAX [Suspect]
     Indication: NERVOUS SYSTEM DISORDER
     Dosage: 20 MG (10 MG, 2 IN 1 D)
  4. ASPIRIN [Suspect]
     Dosage: 81 MG
  5. VICODIN [Suspect]
     Indication: PAIN
     Dosage: 750 MG
  6. SOMA [Suspect]
     Indication: PAIN
     Dosage: (350 MG), ORAL
     Route: 048
  7. LYRICA [Suspect]
     Indication: FIBROMYALGIA
     Dosage: 150 MG (75 MG, 2 IN 1 D) 2-3 YEARS AGO
  8. CELEXA [Suspect]
     Indication: DEPRESSION
     Dosage: 10 MG  2.5 YEARS AGO

REACTIONS (10)
  - TRANSIENT ISCHAEMIC ATTACK [None]
  - GAIT DISTURBANCE [None]
  - H1N1 INFLUENZA [None]
  - HYPOAESTHESIA [None]
  - EAR DISCOMFORT [None]
  - GASTRIC DISORDER [None]
  - PAIN [None]
  - BLINDNESS UNILATERAL [None]
  - HEADACHE [None]
  - FALL [None]
